FAERS Safety Report 16423160 (Version 1)
Quarter: 2019Q2

REPORT INFORMATION
  Report Type: Spontaneous
  Country: US (occurrence: US)
  Receive Date: 20190612
  Receipt Date: 20190612
  Transmission Date: 20190711
  Serious: No
  Sender: FDA-Public Use
  Company Number: US-COVIS PHARMA B.V.-2019COV00113

PATIENT
  Age: 3 Year
  Sex: Male
  Weight: 15.42 kg

DRUGS (3)
  1. OMEPRAZOLE MAGNESIUM. [Suspect]
     Active Substance: OMEPRAZOLE MAGNESIUM
     Dosage: UNK, 2X/DAY
  2. OMEPRAZOLE COMPOUNDED FORMULA [Suspect]
     Active Substance: OMEPRAZOLE
     Dosage: UNK, 2X/DAY
  3. OMEPRAZOLE MAGNESIUM. [Suspect]
     Active Substance: OMEPRAZOLE MAGNESIUM
     Indication: GASTROOESOPHAGEAL REFLUX DISEASE
     Dosage: 10 MG, 1X/DAY
     Route: 048

REACTIONS (2)
  - Vomiting projectile [Unknown]
  - Product intolerance [Unknown]

NARRATIVE: CASE EVENT DATE: 201902
